FAERS Safety Report 11743290 (Version 1)
Quarter: 2015Q4

REPORT INFORMATION
  Report Type: Spontaneous
  Country: US (occurrence: US)
  Receive Date: 20151116
  Receipt Date: 20151116
  Transmission Date: 20160304
  Serious: Yes (Death)
  Sender: FDA-Public Use
  Company Number: US-ACTELION-A-US2015-127032

PATIENT
  Age: 79 Year
  Sex: Female

DRUGS (25)
  1. COUMADIN [Concomitant]
     Active Substance: WARFARIN SODIUM
  2. CRESTOR [Concomitant]
     Active Substance: ROSUVASTATIN CALCIUM
  3. COQ10 [Concomitant]
     Active Substance: UBIDECARENONE
  4. REFRESH CONTACT [Concomitant]
  5. FUROSEMIDE. [Concomitant]
     Active Substance: FUROSEMIDE
  6. BETAMETHASONE. [Concomitant]
     Active Substance: BETAMETHASONE
  7. AUGMENTIN [Concomitant]
     Active Substance: AMOXICILLIN\CLAVULANATE POTASSIUM
  8. BACTROBAN [Concomitant]
     Active Substance: MUPIROCIN\MUPIROCIN CALCIUM
  9. ENALAPRIL [Concomitant]
     Active Substance: ENALAPRIL
  10. MOMETASONE [Concomitant]
     Active Substance: MOMETASONE
  11. FOLIC ACID. [Concomitant]
     Active Substance: FOLIC ACID
  12. METAMUCIL [Concomitant]
     Active Substance: PLANTAGO SEED
  13. PERCOCET [Concomitant]
     Active Substance: ACETAMINOPHEN\OXYCODONE HYDROCHLORIDE
  14. ASPIRIN. [Concomitant]
     Active Substance: ASPIRIN
  15. FIBERCON [Concomitant]
     Active Substance: CALCIUM POLYCARBOPHIL
  16. CALCIUM [Concomitant]
     Active Substance: CALCIUM
  17. LUNESTA [Concomitant]
     Active Substance: ESZOPICLONE
  18. OMEPRAZOLE. [Concomitant]
     Active Substance: OMEPRAZOLE
  19. VALCHLOR [Suspect]
     Active Substance: MECHLORETHAMINE
     Indication: MYCOSIS FUNGOIDES
     Dosage: UNK
     Route: 061
     Dates: start: 20150811, end: 20151020
  20. ALBUTEROL. [Concomitant]
     Active Substance: ALBUTEROL
  21. ATROVENT [Concomitant]
     Active Substance: IPRATROPIUM BROMIDE
  22. BIOTIN [Concomitant]
     Active Substance: BIOTIN
  23. VITAMIN D [Concomitant]
     Active Substance: CHOLECALCIFEROL
  24. FLORASTOR [Concomitant]
     Active Substance: SACCHAROMYCES CEREVISIAE
  25. VITAMIN C [Concomitant]
     Active Substance: ASCORBIC ACID

REACTIONS (1)
  - Death [Fatal]

NARRATIVE: CASE EVENT DATE: 20151103
